FAERS Safety Report 6505601-2 (Version None)
Quarter: 2009Q4

REPORT INFORMATION
  Report Type: 
  Country: None (occurrence: None)
  Receive Date: 20091218
  Receipt Date: 20091207
  Transmission Date: 20100525
  Serious: Yes (Hospitalization)
  Sender: FDA-Public Use
  Company Number: PL-PFIZER INC-2009303344

PATIENT
  Sex: Male

DRUGS (2)
  1. XANAX [Suspect]
     Indication: ANXIETY
     Dosage: 0.5 MG, 2X/DAY
     Route: 048
     Dates: start: 20000101, end: 20091129
  2. XANAX [Suspect]
     Dosage: 0.25MG AND 0.5MG
     Route: 048
     Dates: start: 20091130

REACTIONS (2)
  - BLOOD GLUCOSE INCREASED [None]
  - THROMBOCYTOPENIA [None]
